FAERS Safety Report 15773393 (Version 2)
Quarter: 2019Q1

REPORT INFORMATION
  Report Type: Spontaneous
  Country: US (occurrence: US)
  Receive Date: 20181228
  Receipt Date: 20190123
  Transmission Date: 20190417
  Serious: Yes (Death)
  Sender: FDA-Public Use
  Company Number: US-NEUROCRINE BIOSCIENCES INC.-2018NBI03638

PATIENT
  Age: 68 Year
  Sex: Male

DRUGS (4)
  1. SEROQUEL [Concomitant]
     Active Substance: QUETIAPINE FUMARATE
  2. KLONOPIN [Concomitant]
     Active Substance: CLONAZEPAM
  3. COGENTIN [Concomitant]
     Active Substance: BENZTROPINE MESYLATE
  4. INGREZZA [Suspect]
     Active Substance: VALBENAZINE
     Indication: TARDIVE DYSKINESIA
     Route: 048
     Dates: start: 20170824

REACTIONS (1)
  - Death [Fatal]

NARRATIVE: CASE EVENT DATE: 20181120
